FAERS Safety Report 15901681 (Version 1)
Quarter: 2019Q1

REPORT INFORMATION
  Report Type: Report from Study
  Country: US (occurrence: US)
  Receive Date: 20190201
  Receipt Date: 20190201
  Transmission Date: 20190417
  Serious: Yes (Hospitalization)
  Sender: FDA-Public Use
  Company Number: US-ACTELION-A-US2018-182833

PATIENT
  Age: 62 Year
  Sex: Female

DRUGS (3)
  1. UPTRAVI [Suspect]
     Active Substance: SELEXIPAG
     Dosage: 200 MCG / 800 MCG, BID
     Route: 048
     Dates: start: 20181109
  2. UPTRAVI [Suspect]
     Active Substance: SELEXIPAG
     Indication: PULMONARY ARTERIAL HYPERTENSION
     Dosage: 1600 MCG, BID
     Route: 048
  3. UPTRAVI [Suspect]
     Active Substance: SELEXIPAG
     Dosage: 600 MCG, BID
     Route: 048
     Dates: start: 20181109

REACTIONS (7)
  - Peripheral swelling [Unknown]
  - Diarrhoea [Unknown]
  - Fluid retention [Unknown]
  - Fatigue [Unknown]
  - Condition aggravated [Unknown]
  - Increased appetite [Unknown]
  - Swelling [Unknown]

NARRATIVE: CASE EVENT DATE: 201901
